FAERS Safety Report 8995841 (Version 2)
Quarter: 2013Q1

REPORT INFORMATION
  Report Type: Report from Study
  Country: CA (occurrence: CA)
  Receive Date: 20130103
  Receipt Date: 20130121
  Transmission Date: 20140127
  Serious: Yes (Death, Hospitalization)
  Sender: FDA-Public Use
  Company Number: CA-ABBOTT-13P-028-1031204-00

PATIENT
  Age: 90 Year
  Sex: Male
  Weight: 64.92 kg

DRUGS (7)
  1. LUPRON DEPOT [Suspect]
     Indication: PROSTATE CANCER
     Route: 030
     Dates: start: 20100922
  2. PREDNISONE [Concomitant]
     Indication: PEMPHIGUS
  3. ASPIRIN [Concomitant]
     Indication: PRODUCT USED FOR UNKNOWN INDICATION
  4. ZYLOPRIM [Concomitant]
     Indication: PRODUCT USED FOR UNKNOWN INDICATION
  5. ARICEPT [Concomitant]
     Indication: PRODUCT USED FOR UNKNOWN INDICATION
  6. VASOTEC [Concomitant]
     Indication: PRODUCT USED FOR UNKNOWN INDICATION
  7. TYLENOL WITH CODEINE [Concomitant]
     Indication: PRODUCT USED FOR UNKNOWN INDICATION

REACTIONS (7)
  - Constipation [Unknown]
  - Death [Fatal]
  - Iron deficiency anaemia [Unknown]
  - Respiratory tract congestion [Unknown]
  - Decubitus ulcer [Unknown]
  - Muscle contracture [Unknown]
  - Gastrointestinal haemorrhage [Fatal]
